FAERS Safety Report 24191102 (Version 1)
Quarter: 2024Q3

REPORT INFORMATION
  Report Type: Report from Study
  Country: GB (occurrence: GB)
  Receive Date: 20240808
  Receipt Date: 20240808
  Transmission Date: 20241017
  Serious: Yes (Life-Threatening, Hospitalization)
  Sender: AMGEN
  Company Number: GB-AMGEN-GBRSL2024154316

PATIENT
  Age: 43 Year
  Sex: Male

DRUGS (1)
  1. ADALIMUMAB [Suspect]
     Active Substance: ADALIMUMAB
     Indication: Crohn^s disease
     Dosage: 40 MILLIGRAM PEN PK2
     Route: 065
     Dates: start: 202306

REACTIONS (3)
  - Cerebrovascular accident [Unknown]
  - Product storage error [Unknown]
  - Circumstance or information capable of leading to medication error [Unknown]

NARRATIVE: CASE EVENT DATE: 20240101
